FAERS Safety Report 23448032 (Version 5)
Quarter: 2024Q1

REPORT INFORMATION
  Report Type: Spontaneous
  Country: BE (occurrence: BE)
  Receive Date: 20240126
  Receipt Date: 20240320
  Transmission Date: 20240410
  Serious: Yes (Hospitalization, Other)
  Sender: FDA-Public Use
  Company Number: BE-BIOVITRUM-2024-BE-001234

PATIENT

DRUGS (1)
  1. PEGCETACOPLAN [Suspect]
     Active Substance: PEGCETACOPLAN
     Indication: Oesophageal carcinoma
     Dosage: 1080MG/20ML  2 TIMES/ WEEK
     Route: 058
     Dates: start: 20231128

REACTIONS (5)
  - Malignant neoplasm progression [Not Recovered/Not Resolved]
  - Embolic stroke [Unknown]
  - Endocarditis noninfective [Unknown]
  - Extravascular haemolysis [Not Recovered/Not Resolved]
  - Off label use [Recovered/Resolved]

NARRATIVE: CASE EVENT DATE: 20231128
